FAERS Safety Report 23651526 (Version 3)
Quarter: 2025Q1

REPORT INFORMATION
  Report Type: Spontaneous
  Country: US (occurrence: US)
  Receive Date: 20240320
  Receipt Date: 20250306
  Transmission Date: 20250409
  Serious: Yes (Other)
  Sender: SANOFI AVENTIS
  Company Number: US-SA-SAC20240318001163

PATIENT
  Age: 67 Year
  Sex: Female

DRUGS (33)
  1. DUPIXENT [Suspect]
     Active Substance: DUPILUMAB
     Indication: Asthma
     Dosage: 300 MG, QOW
     Route: 058
     Dates: start: 20220901
  2. ASPIRIN [Concomitant]
     Active Substance: ASPIRIN
  3. JARDIANCE [Concomitant]
     Active Substance: EMPAGLIFLOZIN
  4. JARDIANCE [Concomitant]
     Active Substance: EMPAGLIFLOZIN
  5. LISINOPRIL [Concomitant]
     Active Substance: LISINOPRIL
  6. LISINOPRIL [Concomitant]
     Active Substance: LISINOPRIL
  7. MOUNJARO [Concomitant]
     Active Substance: TIRZEPATIDE
  8. ALBUTEROL [Concomitant]
     Active Substance: ALBUTEROL
  9. ATORVASTATIN [Concomitant]
     Active Substance: ATORVASTATIN
  10. ATORVASTATIN [Concomitant]
     Active Substance: ATORVASTATIN
  11. DRAMAMINE [Concomitant]
     Active Substance: DIMENHYDRINATE
  12. FUROSEMIDE [Concomitant]
     Active Substance: FUROSEMIDE
  13. FUROSEMIDE [Concomitant]
     Active Substance: FUROSEMIDE
  14. GLYXAMBI [Concomitant]
     Active Substance: EMPAGLIFLOZIN\LINAGLIPTIN
  15. GLYXAMBI [Concomitant]
     Active Substance: EMPAGLIFLOZIN\LINAGLIPTIN
  16. METFORMIN HYDROCHLORIDE [Concomitant]
     Active Substance: METFORMIN HYDROCHLORIDE
  17. METFORMIN HYDROCHLORIDE [Concomitant]
     Active Substance: METFORMIN HYDROCHLORIDE
  18. MONTELUKAST [Concomitant]
     Active Substance: MONTELUKAST
  19. OMEPRAZOLE [Concomitant]
     Active Substance: OMEPRAZOLE
  20. OMEPRAZOLE [Concomitant]
     Active Substance: OMEPRAZOLE
  21. PREGABALIN [Concomitant]
     Active Substance: PREGABALIN
  22. PREGABALIN [Concomitant]
     Active Substance: PREGABALIN
  23. SPIRIVA [Concomitant]
     Active Substance: TIOTROPIUM BROMIDE MONOHYDRATE
  24. SPIRIVA [Concomitant]
     Active Substance: TIOTROPIUM BROMIDE MONOHYDRATE
  25. SYMBICORT [Concomitant]
     Active Substance: BUDESONIDE\FORMOTEROL FUMARATE DIHYDRATE
  26. SYMBICORT [Concomitant]
     Active Substance: BUDESONIDE\FORMOTEROL FUMARATE DIHYDRATE
  27. VITAMIN D NOS [Concomitant]
     Active Substance: CHOLECALCIFEROL\ERGOCALCIFEROL
  28. CYCLOBENZAPRINE [Concomitant]
     Active Substance: CYCLOBENZAPRINE
  29. CYCLOBENZAPRINE [Concomitant]
     Active Substance: CYCLOBENZAPRINE
  30. LEVOCETIRIZINE DIHYDROCHLORIDE [Concomitant]
     Active Substance: LEVOCETIRIZINE DIHYDROCHLORIDE
  31. ALBUTEROL SULFATE [Concomitant]
     Active Substance: ALBUTEROL SULFATE
  32. ALLEGRA ALLERGY [Concomitant]
     Active Substance: FEXOFENADINE HYDROCHLORIDE
  33. BENADRYL ALLERGY [Concomitant]
     Active Substance: DIPHENHYDRAMINE HYDROCHLORIDE

REACTIONS (11)
  - Cerebrovascular accident [Unknown]
  - Cough [Not Recovered/Not Resolved]
  - Balance disorder [Not Recovered/Not Resolved]
  - Insomnia [Unknown]
  - Sleep disorder due to a general medical condition [Not Recovered/Not Resolved]
  - COVID-19 [Not Recovered/Not Resolved]
  - Dyspnoea [Not Recovered/Not Resolved]
  - Arthropathy [Not Recovered/Not Resolved]
  - Gait disturbance [Not Recovered/Not Resolved]
  - Cartilage atrophy [Not Recovered/Not Resolved]
  - Inappropriate schedule of product administration [Unknown]

NARRATIVE: CASE EVENT DATE: 20230101
